FAERS Safety Report 11922274 (Version 1)
Quarter: 2016Q1

REPORT INFORMATION
  Report Type: Spontaneous
  Country: US (occurrence: US)
  Receive Date: 20160115
  Receipt Date: 20160115
  Transmission Date: 20160526
  Serious: Yes (Disabling)
  Sender: FDA-Public Use
  Company Number: US-ROCHE-1678674

PATIENT
  Age: 76 Year
  Sex: Female
  Weight: 87.09 kg

DRUGS (8)
  1. TAXOTERE [Suspect]
     Active Substance: DOCETAXEL
     Indication: BREAST CANCER STAGE IV
     Route: 042
     Dates: start: 20151020, end: 20151110
  2. HERCEPTIN [Suspect]
     Active Substance: TRASTUZUMAB
     Indication: BREAST CANCER STAGE IV
     Route: 042
     Dates: start: 20151020
  3. XGEVA [Concomitant]
     Active Substance: DENOSUMAB
     Route: 058
     Dates: start: 20151021, end: 20151021
  4. DECADRON [Concomitant]
     Active Substance: DEXAMETHASONE
     Route: 042
     Dates: start: 20151020, end: 20151020
  5. NEULASTA [Concomitant]
     Active Substance: PEGFILGRASTIM
     Route: 058
     Dates: start: 20151021, end: 20151021
  6. HERCEPTIN [Suspect]
     Active Substance: TRASTUZUMAB
     Route: 042
  7. PERJETA [Suspect]
     Active Substance: PERTUZUMAB
     Indication: BREAST CANCER STAGE IV
     Route: 042
     Dates: start: 20151020, end: 20151110
  8. ATOXIL [Concomitant]
     Route: 042
     Dates: start: 20151020, end: 20151020

REACTIONS (3)
  - Fluid retention [Recovering/Resolving]
  - Lacrimation increased [Recovered/Resolved]
  - Dermatitis [Recovered/Resolved]

NARRATIVE: CASE EVENT DATE: 20151116
